FAERS Safety Report 5611119-1 (Version None)
Quarter: 2008Q1

REPORT INFORMATION
  Report Type: 
  Country: None (occurrence: None)
  Receive Date: 20080201
  Receipt Date: 20080125
  Transmission Date: 20080703
  Serious: Yes (Death, Hospitalization)
  Sender: FDA-Public Use
  Company Number: CG-MERCK-0801USA05238

PATIENT
  Age: 49 Year
  Sex: Male

DRUGS (1)
  1. MECTIZAN [Suspect]
     Route: 048
     Dates: start: 20071224

REACTIONS (3)
  - ENCEPHALOPATHY [None]
  - MENINGITIS [None]
  - SEPSIS [None]
